FAERS Safety Report 9166671 (Version 1)
Quarter: 2013Q1

REPORT INFORMATION
  Report Type: Spontaneous
  Country: US (occurrence: US)
  Receive Date: 20130315
  Receipt Date: 20130315
  Transmission Date: 20140127
  Serious: No
  Sender: FDA-Public Use
  Company Number: US-TEVA-391644USA

PATIENT
  Sex: Female

DRUGS (1)
  1. ENJUVIA [Suspect]
     Indication: HYSTERECTOMY
     Dates: start: 201202

REACTIONS (3)
  - Malaise [Unknown]
  - Blood cholesterol increased [Recovered/Resolved]
  - Abdominal discomfort [Unknown]
